FAERS Safety Report 10159611 (Version 1)
Quarter: 2014Q2

REPORT INFORMATION
  Report Type: Spontaneous
  Country: US (occurrence: US)
  Receive Date: 20140508
  Receipt Date: 20140508
  Transmission Date: 20141212
  Serious: No
  Sender: FDA-Public Use
  Company Number: US-GLAXOSMITHKLINE-A1015805A

PATIENT
  Age: 66 Year
  Sex: Female

DRUGS (13)
  1. TYKERB [Suspect]
     Indication: BREAST CANCER
     Dosage: 500MG PER DAY
     Route: 048
     Dates: start: 20130306, end: 20130308
  2. AMPICILLIN [Concomitant]
  3. ASPIRIN [Concomitant]
  4. SPIRONOLACTONE [Concomitant]
  5. SYNTHROID [Concomitant]
  6. TORSEMIDE [Concomitant]
  7. ZOCOR [Concomitant]
  8. ANASTROZOLE [Concomitant]
  9. METOLAZONE [Concomitant]
  10. METOPROLOL [Concomitant]
  11. SENNA [Concomitant]
  12. MALARONE [Concomitant]
  13. INSULIN [Concomitant]

REACTIONS (3)
  - Nausea [Recovering/Resolving]
  - Vomiting [Unknown]
  - Dizziness [Unknown]
